FAERS Safety Report 7936918 (Version 2)
Quarter: 2014Q3

REPORT INFORMATION
  Report Type: Report from Study
  Country: US (occurrence: US)
  Receive Date: 20110509
  Receipt Date: 20140707
  Transmission Date: 20150326
  Serious: No
  Sender: FDA-Public Use
  Company Number: US-ALEXION-A201100150

PATIENT

DRUGS (1)
  1. SOLIRIS [Suspect]
     Active Substance: ECULIZUMAB
     Indication: PAROXYSMAL NOCTURNAL HAEMOGLOBINURIA
     Dosage: UNK, QMONTH
     Route: 042

REACTIONS (3)
  - Inappropriate schedule of drug administration [Unknown]
  - Packed red blood cell transfusion [Not Recovered/Not Resolved]
  - Platelet transfusion [Recovered/Resolved]

NARRATIVE: CASE EVENT DATE: 20110202
